FAERS Safety Report 17239060 (Version 1)
Quarter: 2020Q1

REPORT INFORMATION
  Report Type: Spontaneous
  Country: US (occurrence: US)
  Receive Date: 20200106
  Receipt Date: 20200106
  Transmission Date: 20200409
  Serious: No
  Sender: FDA-Public Use
  Company Number: US-ABBVIE-19K-163-2905322-00

PATIENT
  Sex: Male

DRUGS (4)
  1. IMBRUVICA [Suspect]
     Active Substance: IBRUTINIB
     Indication: CHRONIC LYMPHOCYTIC LEUKAEMIA
     Dosage: 1 DOSAGE
     Route: 048
     Dates: start: 20180122, end: 20180414
  2. IMBRUVICA [Suspect]
     Active Substance: IBRUTINIB
     Dosage: 1 DOSAGE
     Route: 048
     Dates: start: 20180415, end: 20180613
  3. IMBRUVICA [Suspect]
     Active Substance: IBRUTINIB
     Route: 048
     Dates: start: 20180614
  4. VENCLEXTA [Suspect]
     Active Substance: VENETOCLAX
     Indication: PRODUCT USED FOR UNKNOWN INDICATION
     Route: 048

REACTIONS (1)
  - Fatigue [Not Recovered/Not Resolved]
